FAERS Safety Report 25664749 (Version 1)
Quarter: 2025Q3

REPORT INFORMATION
  Report Type: Spontaneous
  Country: US (occurrence: US)
  Receive Date: 20250811
  Receipt Date: 20250811
  Transmission Date: 20251021
  Serious: Yes (Life-Threatening, Hospitalization)
  Sender: MYLAN
  Company Number: US-MYLANLABS-2025M1067498

PATIENT
  Age: 38 Year
  Sex: Female

DRUGS (6)
  1. EPINEPHRINE [Suspect]
     Active Substance: EPINEPHRINE
     Indication: Haemodynamic instability
     Dosage: UNK, QMINUTE (4?30 ?G)
  2. NOREPINEPHRINE BITARTRATE [Suspect]
     Active Substance: NOREPINEPHRINE BITARTRATE
     Indication: Haemodynamic instability
     Dosage: UNK, QMINUTE (6?40 ?G)
  3. PHENYLEPHRINE [Suspect]
     Active Substance: PHENYLEPHRINE
     Indication: Haemodynamic instability
     Dosage: 300 MICROGRAM, QMINUTE
  4. VASOPRESSIN [Suspect]
     Active Substance: VASOPRESSIN
     Indication: Haemodynamic instability
     Dosage: 0.04 INTERNATIONAL UNIT, QMINUTE
  5. METHYLENE BLUE [Suspect]
     Active Substance: METHYLENE BLUE
     Indication: Haemodynamic instability
  6. METHYLENE BLUE [Suspect]
     Active Substance: METHYLENE BLUE
     Dosage: 25 MILLIGRAM, QH (IV INFUSION)

REACTIONS (1)
  - Drug ineffective [Unknown]
